FAERS Safety Report 19465356 (Version 3)
Quarter: 2024Q4

REPORT INFORMATION
  Report Type: Report from Study
  Country: US (occurrence: US)
  Receive Date: 20210624
  Receipt Date: 20241111
  Transmission Date: 20250115
  Serious: Yes (Hospitalization)
  Sender: TAKEDA
  Company Number: US-SHIRE-US202013094

PATIENT
  Age: 61 Year
  Sex: Male

DRUGS (5)
  1. TEDUGLUTIDE [Suspect]
     Active Substance: TEDUGLUTIDE
     Indication: Short-bowel syndrome
     Dosage: 1.9 MILLIGRAM, QD
     Dates: start: 20190606
  2. TEDUGLUTIDE [Suspect]
     Active Substance: TEDUGLUTIDE
     Indication: Colon cancer
     Dosage: UNK
  3. TEDUGLUTIDE [Suspect]
     Active Substance: TEDUGLUTIDE
     Dosage: UNK UNK, QD
     Dates: start: 20210610
  4. TEDUGLUTIDE [Suspect]
     Active Substance: TEDUGLUTIDE
  5. POTASSIUM [Concomitant]
     Active Substance: POTASSIUM
     Indication: Product used for unknown indication

REACTIONS (7)
  - Dehydration [Recovered/Resolved]
  - Electrolyte imbalance [Unknown]
  - Vomiting [Unknown]
  - Insurance issue [Unknown]
  - Product use in unapproved indication [Unknown]
  - Procedural pain [Unknown]
  - Discharge [Unknown]

NARRATIVE: CASE EVENT DATE: 20200326
